FAERS Safety Report 11097611 (Version 1)
Quarter: 2015Q2

REPORT INFORMATION
  Report Type: Spontaneous
  Country: GB (occurrence: GB)
  Receive Date: 20150507
  Receipt Date: 20150507
  Transmission Date: 20150821
  Serious: Yes (Disabling, Other)
  Sender: FDA-Public Use
  Company Number: GB-TEVA-560338ACC

PATIENT
  Age: 37 Year
  Sex: Male
  Weight: 80 kg

DRUGS (1)
  1. SERTRALINE [Suspect]
     Active Substance: SERTRALINE HYDROCHLORIDE
     Indication: DEPRESSION
     Dosage: BETWEEN 50 AND 150MG/DAY
     Route: 048
     Dates: start: 20081117, end: 2013

REACTIONS (3)
  - Alcohol interaction [Unknown]
  - Homicide [Unknown]
  - Contraindicated drug administered [Unknown]

NARRATIVE: CASE EVENT DATE: 20120611
